FAERS Safety Report 23035196 (Version 2)
Quarter: 2023Q4

REPORT INFORMATION
  Report Type: Spontaneous
  Country: JP (occurrence: JP)
  Receive Date: 20231005
  Receipt Date: 20231022
  Transmission Date: 20240109
  Serious: Yes (Hospitalization, Other)
  Sender: FDA-Public Use
  Company Number: JP-TAKEDA-2023TJP013145

PATIENT
  Age: 70 Year
  Sex: Female

DRUGS (10)
  1. AGRYLIN [Suspect]
     Active Substance: ANAGRELIDE HYDROCHLORIDE
     Indication: Essential thrombocythaemia
     Dosage: 0.5 MILLIGRAM, BID
     Route: 048
     Dates: start: 20220808
  2. AGRYLIN [Suspect]
     Active Substance: ANAGRELIDE HYDROCHLORIDE
     Dosage: 1.5 MILLIGRAM
     Route: 048
     Dates: start: 20230207
  3. AGRYLIN [Suspect]
     Active Substance: ANAGRELIDE HYDROCHLORIDE
     Dosage: 2 MILLIGRAM
     Route: 048
     Dates: start: 20230228
  4. AGRYLIN [Suspect]
     Active Substance: ANAGRELIDE HYDROCHLORIDE
     Dosage: 2.5 MILLIGRAM
     Route: 048
     Dates: start: 20230314
  5. AGRYLIN [Suspect]
     Active Substance: ANAGRELIDE HYDROCHLORIDE
     Dosage: 1.5 MILLIGRAM, BID
     Route: 048
     Dates: start: 20230413
  6. VONOPRAZAN FUMARATE [Concomitant]
     Active Substance: VONOPRAZAN FUMARATE
     Dosage: 1 DOSAGE FORM, QD
     Route: 065
  7. POLAPREZINC [Concomitant]
     Active Substance: POLAPREZINC
     Dosage: 2 DOSAGE FORM, BID
     Route: 065
  8. HYDREA [Concomitant]
     Active Substance: HYDROXYUREA
     Indication: Essential thrombocythaemia
     Dosage: 2 DOSAGE FORM, QD
     Route: 065
  9. HYDREA [Concomitant]
     Active Substance: HYDROXYUREA
     Dosage: 1 DOSAGE FORM, QD
     Route: 065
     Dates: start: 202302, end: 20230620
  10. ASPIRIN [Concomitant]
     Active Substance: ASPIRIN
     Indication: Essential thrombocythaemia
     Dosage: 1 DOSAGE FORM, QD
     Route: 065

REACTIONS (9)
  - Renal impairment [Unknown]
  - Gastric ulcer [Unknown]
  - Hyperkalaemia [Unknown]
  - Essential thrombocythaemia [Unknown]
  - Gastrointestinal polyp haemorrhage [Recovering/Resolving]
  - Anaemia [Unknown]
  - Cardiac failure congestive [Unknown]
  - Helicobacter infection [Unknown]
  - Vomiting [Unknown]

NARRATIVE: CASE EVENT DATE: 20230201
